FAERS Safety Report 8341244-6 (Version None)
Quarter: 2012Q2

REPORT INFORMATION
  Report Type: 
  Country: None (occurrence: None)
  Receive Date: 20120507
  Receipt Date: 20120426
  Transmission Date: 20120825
  Serious: Yes (Death)
  Sender: FDA-Public Use
  Company Number: US-CELGENEUS-163-21880-12050426

PATIENT
  Sex: Female

DRUGS (9)
  1. CALCIUM [Concomitant]
     Dosage: 500 MILLIGRAM
     Route: 048
  2. PROBIOTIC [Concomitant]
     Route: 048
  3. REVLIMID [Suspect]
     Indication: MULTIPLE MYELOMA
     Dosage: 10 MILLIGRAM
     Route: 048
     Dates: start: 20120403, end: 20120401
  4. METOPROLOL TARTRATE [Concomitant]
     Dosage: 100 MILLIGRAM
     Route: 048
  5. POTASSIUM CHELATED [Concomitant]
     Route: 048
  6. ASPIRIN [Concomitant]
     Dosage: 81 MILLIGRAM
     Route: 048
  7. LASIX [Concomitant]
     Dosage: 20 MILLIGRAM
     Route: 048
  8. DECADRON [Concomitant]
     Dosage: .5 MILLIGRAM
     Route: 048
  9. MULTIVITAMIN FOR HER [Concomitant]
     Route: 048

REACTIONS (1)
  - DEATH [None]
